FAERS Safety Report 5670929-5 (Version None)
Quarter: 2008Q1

REPORT INFORMATION
  Report Type: 
  Country: None (occurrence: None)
  Receive Date: 20080318
  Receipt Date: 20080307
  Transmission Date: 20080703
  Serious: Yes (Hospitalization)
  Sender: FDA-Public Use
  Company Number: B0512502A

PATIENT
  Age: 83 Year
  Sex: Male
  Weight: 70 kg

DRUGS (11)
  1. ARIXTRA [Suspect]
     Indication: PROPHYLAXIS
     Dosage: 7.5MG PER DAY
     Route: 058
     Dates: start: 20071201
  2. CELECTOL [Concomitant]
     Dosage: 200MG PER DAY
     Route: 048
  3. TRIATEC [Concomitant]
     Dosage: 2.5MG TWICE PER DAY
     Route: 048
  4. CORTANCYL [Concomitant]
     Dosage: 2MG PER DAY
     Route: 048
  5. SERESTA [Concomitant]
     Dosage: 10MG PER DAY
     Route: 048
  6. TADENAN [Concomitant]
     Dosage: 50MG TWICE PER DAY
     Route: 048
  7. ZOLPIDEM [Concomitant]
     Dosage: 10MG PER DAY
     Route: 048
  8. PARACETAMOL [Concomitant]
  9. CLAMOXYL [Concomitant]
     Dosage: 500MG TWICE PER DAY
     Route: 048
     Dates: start: 20071205, end: 20071211
  10. PREVISCAN [Concomitant]
     Route: 048
     Dates: start: 20071206
  11. THALIDOMIDE [Concomitant]

REACTIONS (7)
  - ASTHENIA [None]
  - CREATININE RENAL CLEARANCE DECREASED [None]
  - GINGIVAL BLEEDING [None]
  - HAEMOPTYSIS [None]
  - HAEMORRHAGIC ANAEMIA [None]
  - INTERNATIONAL NORMALISED RATIO INCREASED [None]
  - MELAENA [None]
